FAERS Safety Report 12870588 (Version 1)
Quarter: 2016Q4

REPORT INFORMATION
  Report Type: Spontaneous
  Country: US (occurrence: US)
  Receive Date: 20161021
  Receipt Date: 20161021
  Transmission Date: 20170207
  Serious: Yes (Disabling, Other)
  Sender: FDA-Public Use
  Company Number: None

PATIENT
  Age: 55 Year
  Sex: Female
  Weight: 43.09 kg

DRUGS (3)
  1. NORCO [Concomitant]
     Active Substance: ACETAMINOPHEN\HYDROCODONE BITARTRATE
  2. AMBIEN [Concomitant]
     Active Substance: ZOLPIDEM TARTRATE
  3. BUSPAR [Suspect]
     Active Substance: BUSPIRONE HYDROCHLORIDE
     Indication: PRODUCT USED FOR UNKNOWN INDICATION
     Dosage: 1 TO 3 TABLETS TWICE DAILY?ONLY 1 2 OR 3 TIMES OVER 7 DAYS
     Dates: start: 20160907, end: 20160913

REACTIONS (16)
  - Muscle contractions involuntary [None]
  - Tremor [None]
  - Anxiety [None]
  - Feeling abnormal [None]
  - Fatigue [None]
  - Muscle spasms [None]
  - Disturbance in attention [None]
  - Visual impairment [None]
  - Headache [None]
  - Hyperventilation [None]
  - Quality of life decreased [None]
  - Malaise [None]
  - Stress [None]
  - Dyspnoea [None]
  - Heart rate increased [None]
  - Staring [None]

NARRATIVE: CASE EVENT DATE: 20160921
